FAERS Safety Report 8933564 (Version 1)
Quarter: 2012Q4

REPORT INFORMATION
  Report Type: 
  Country: GB (occurrence: SI)
  Receive Date: 20121129
  Receipt Date: 20121129
  Transmission Date: 20130627
  Serious: Yes (Other)
  Sender: FDA-Public Use
  Company Number: SI-AMGEN-SVNSP2012071819

PATIENT
  Sex: Female

DRUGS (7)
  1. PROLIA [Suspect]
     Indication: OSTEOPOROSIS
     Dosage: 60 mg, q6mo
     Dates: start: 201111
  2. CALCIUM + VITAMIN D3 [Concomitant]
     Dosage: UNK
     Route: 048
  3. ULTOP                              /00661201/ [Concomitant]
     Dosage: 20 mg, qd
  4. PLIVIT D3 [Concomitant]
     Dosage: UNK UNK, qwk
  5. PLIVIT D3 [Concomitant]
     Dosage: 35DROP Weekly
  6. CALCIUM CARBONATE [Concomitant]
     Dosage: 500 mg, UNK
     Route: 048
  7. FLIXOTIDE [Concomitant]
     Indication: ASTHMA
     Dosage: 500 mug, qd
     Route: 055

REACTIONS (11)
  - Vein disorder [Unknown]
  - Haemorrhage subcutaneous [Unknown]
  - Asthma [Unknown]
  - Capillary disorder [Unknown]
  - Back pain [Unknown]
  - Stomatitis [Unknown]
  - Sinusitis [Unknown]
  - Paranasal sinus hypersecretion [Unknown]
  - Muscle spasms [Unknown]
  - Pain in extremity [Unknown]
  - Erythema [Unknown]
